FAERS Safety Report 8455331-5 (Version None)
Quarter: 2012Q2

REPORT INFORMATION
  Report Type: 
  Country: None (occurrence: None)
  Receive Date: 20120614
  Receipt Date: 20120529
  Transmission Date: 20120825
  Serious: Yes (Life-Threatening, Other)
  Sender: FDA-Public Use
  Company Number: MC201200294

PATIENT
  Age: 81 Year
  Sex: Female
  Weight: 99.8 kg

DRUGS (22)
  1. ANGIOMAX [Suspect]
     Indication: DRUG THERAPY
     Dosage: 15 ML, BOLUS (250 MG/50 ML) BEFORE BALLOON INFLATION, INTRAVENOUS
     Route: 042
     Dates: start: 20120430, end: 20120430
  2. LASIX [Concomitant]
  3. COZAAR [Concomitant]
  4. SODIUM CHLORIDE [Concomitant]
  5. FLOVENT (FLUITICASONE PROPIONATE) [Concomitant]
  6. CALCIUM PLUS D (CALCIUM, COLECALCIFEROL) [Concomitant]
  7. VERSED [Concomitant]
  8. FENTANYL [Concomitant]
  9. HEPARIN [Concomitant]
  10. ASPIRIN [Concomitant]
  11. FLORASTOR (SACCHAROMYCES BOULARDII) [Concomitant]
  12. NEXIUM [Concomitant]
  13. PRAVACHOL [Concomitant]
  14. OMEPRAZOLE [Concomitant]
  15. FIORICET WITH CODEINE (BUTALBITAL, CAFFEINE, CODEINE PHOSPHATE, PARACE [Concomitant]
  16. KLOR-CON [Concomitant]
  17. BETAPACE [Concomitant]
  18. FISH OIL [Concomitant]
  19. SYSTANE (MACROGOL, PROPYLENE GLYCOL) [Concomitant]
  20. LIDOCAINE [Concomitant]
  21. ANCEF [Concomitant]
  22. TOPROL-XL [Concomitant]

REACTIONS (6)
  - HYPOTENSION [None]
  - PERICARDIAL HAEMORRHAGE [None]
  - RIGHT ATRIAL PRESSURE INCREASED [None]
  - OFF LABEL USE [None]
  - CARDIAC PERFORATION [None]
  - CARDIAC TAMPONADE [None]
